FAERS Safety Report 4956806-3 (Version None)
Quarter: 2006Q1

REPORT INFORMATION
  Report Type: 
  Country: None (occurrence: None)
  Receive Date: 20060323
  Receipt Date: 20060306
  Transmission Date: 20060701
  Serious: Yes (Hospitalization)
  Sender: FDA-Public Use
  Company Number: 222614

PATIENT
  Age: 61 Year
  Sex: Female
  Weight: 63 kg

DRUGS (10)
  1. AVASTIN [Suspect]
     Indication: COLORECTAL CANCER METASTATIC
     Dosage: 465 MG, Q14D
     Dates: start: 20060201
  2. MITOMYCIN [Suspect]
     Indication: COLORECTAL CANCER METASTATIC
     Dosage: 11  MG, Q14D
     Dates: start: 20060201
  3. CAPECITABINE (CAPECITABINE) [Suspect]
     Indication: COLORECTAL CANCER METASTATIC
     Dosage: 3150 MG, QD
     Dates: start: 20060201
  4. COLOXYL WITH SENNA (DOCUSATE SODIUM, SENNOSIDES) [Concomitant]
  5. GARLIC + HORSERADISH (GARLIC, HORSE-RADISH) [Concomitant]
  6. FISH OIL [Concomitant]
  7. ATACAND [Concomitant]
  8. MULTI-VITAMIN [Concomitant]
  9. SIMVASTATIN [Concomitant]
  10. TEMAZEPAM [Concomitant]

REACTIONS (6)
  - BLOOD CREATININE INCREASED [None]
  - DEHYDRATION [None]
  - FATIGUE [None]
  - MUCOSAL INFLAMMATION [None]
  - SOMNOLENCE [None]
  - VOMITING [None]
